FAERS Safety Report 10182708 (Version 1)
Quarter: 2014Q2

REPORT INFORMATION
  Report Type: Spontaneous
  Country: US (occurrence: None)
  Receive Date: 20140519
  Receipt Date: 20140519
  Transmission Date: 20141212
  Serious: No
  Sender: FDA-Public Use
  Company Number: None

PATIENT
  Age: 9 Year
  Sex: Female

DRUGS (9)
  1. TACROLIMUS [Suspect]
     Indication: RENAL TRANSPLANT
     Dosage: 17 X5MG CAPSULES BID ORAL
     Route: 048
     Dates: start: 20140402
  2. TACROLIMUS [Suspect]
     Indication: KIDNEY TRANSPLANT REJECTION
     Dosage: 17 X5MG CAPSULES BID ORAL
     Route: 048
     Dates: start: 20140402
  3. FOLIC ACID [Concomitant]
  4. PREDNISOLONE [Concomitant]
  5. ERGOCALCIFEROL [Concomitant]
  6. CALCIUM CARBONATE [Concomitant]
  7. FERROUS SULFATE [Concomitant]
  8. MIRALAX [Concomitant]
  9. TACROLIMUS [Concomitant]

REACTIONS (2)
  - Drug level decreased [None]
  - Product substitution issue [None]
